FAERS Safety Report 15717404 (Version 1)
Quarter: 2018Q4

REPORT INFORMATION
  Report Type: Spontaneous
  Country: US (occurrence: US)
  Receive Date: 20181129
  Receipt Date: 20181129
  Transmission Date: 20190205
  Serious: No
  Sender: FDA-Public Use
  Company Number: None

PATIENT

DRUGS (2)
  1. ETOPOSIDE. [Suspect]
     Active Substance: ETOPOSIDE
     Dosage: ?          OTHER STRENGTH:INJECTION 1G/50ML?
  2. METHOTREXATE INJECTION [Suspect]
     Active Substance: METHOTREXATE
     Dosage: ?          OTHER STRENGTH:INJECTION1G/50 ML?

REACTIONS (3)
  - Product appearance confusion [None]
  - Intercepted product dispensing error [None]
  - Product packaging confusion [None]

NARRATIVE: CASE EVENT DATE: 20181029
